FAERS Safety Report 5282268-5 (Version None)
Quarter: 2007Q1

REPORT INFORMATION
  Report Type: 
  Country: None (occurrence: None)
  Receive Date: 20070330
  Receipt Date: 20070320
  Transmission Date: 20070707
  Serious: Yes (Other)
  Sender: FDA-Public Use
  Company Number: US-PFIZER INC-2007023019

PATIENT
  Sex: Male
  Weight: 79.4 kg

DRUGS (1)
  1. BEXTRA [Suspect]
     Indication: ARTHRALGIA

REACTIONS (2)
  - ANXIETY [None]
  - SKIN REACTION [None]
